FAERS Safety Report 16563977 (Version 1)
Quarter: 2019Q3

REPORT INFORMATION
  Report Type: Spontaneous
  Country: US (occurrence: US)
  Receive Date: 20190712
  Receipt Date: 20190712
  Transmission Date: 20191004
  Serious: No
  Sender: FDA-Public Use
  Company Number: US-TEVA-2019-US-1074001

PATIENT

DRUGS (1)
  1. DOCOSANOL CREAM 10% [Suspect]
     Active Substance: DOCOSANOL
     Indication: ORAL HERPES
     Dosage: 10% 0.7 OZ
     Route: 061

REACTIONS (2)
  - Product packaging issue [Unknown]
  - Drug ineffective [Unknown]
